FAERS Safety Report 9910909 (Version 2)
Quarter: 2014Q1

REPORT INFORMATION
  Report Type: Spontaneous
  Country: IT (occurrence: IT)
  Receive Date: 20140219
  Receipt Date: 20140311
  Transmission Date: 20141002
  Serious: Yes (Other)
  Sender: FDA-Public Use
  Company Number: IT-ACTAVIS-2014-02687

PATIENT
  Age: 65 Year
  Sex: Male

DRUGS (2)
  1. OXALIPLATIN (UNKNOWN) [Suspect]
     Indication: COLON CANCER
     Dosage: 200 MG, CYCLICAL
     Route: 042
     Dates: start: 20131127, end: 20140129
  2. XELODA [Suspect]
     Indication: COLON CANCER
     Dosage: 2500 MG, CYCLICAL
     Route: 048
     Dates: start: 20131127, end: 20140129

REACTIONS (2)
  - Thrombocytopenia [Recovering/Resolving]
  - Paraesthesia [Recovering/Resolving]
